FAERS Safety Report 16300636 (Version 1)
Quarter: 2019Q2

REPORT INFORMATION
  Report Type: Spontaneous
  Country: FR (occurrence: FR)
  Receive Date: 20190510
  Receipt Date: 20190510
  Transmission Date: 20190711
  Serious: Yes (Other)
  Sender: FDA-Public Use
  Company Number: FR-ELI_LILLY_AND_COMPANY-FR201905000360

PATIENT
  Sex: Female

DRUGS (2)
  1. ALIMTA [Suspect]
     Active Substance: PEMETREXED DISODIUM
     Indication: LUNG ADENOCARCINOMA
     Dosage: UNK, UNKNOWN
     Route: 065
  2. CISPLATINE [Suspect]
     Active Substance: CISPLATIN
     Indication: LUNG ADENOCARCINOMA
     Dosage: UNK, UNKNOWN
     Route: 065

REACTIONS (3)
  - Lacrimation increased [Recovered/Resolved]
  - Pruritus [Recovered/Resolved]
  - Angioedema [Recovered/Resolved]
